FAERS Safety Report 7913941-5 (Version None)
Quarter: 2011Q4

REPORT INFORMATION
  Report Type: 
  Country: None (occurrence: None)
  Receive Date: 20111115
  Receipt Date: 20111109
  Transmission Date: 20120403
  Serious: Yes (Other)
  Sender: FDA-Public Use
  Company Number: BR-PFIZER INC-2011274434

PATIENT
  Age: 43 Year
  Sex: Female

DRUGS (5)
  1. TRANEXAMIC ACID [Suspect]
     Route: 042
  2. VITAMIN K TAB [Suspect]
     Route: 042
  3. PREMARIN [Suspect]
     Indication: OFF LABEL USE
     Dosage: 0.3 MG, ONE TABLET ONCE DAILY
     Route: 048
     Dates: start: 20111108
  4. IPSILON [Concomitant]
     Indication: HAEMORRHAGE
     Dosage: UNK
  5. PREMARIN [Suspect]
     Indication: HAEMORRHAGE

REACTIONS (2)
  - RASH MACULAR [None]
  - HAEMORRHAGE [None]
